FAERS Safety Report 8548232-5 (Version None)
Quarter: 2012Q3

REPORT INFORMATION
  Report Type: 
  Country: None (occurrence: None)
  Receive Date: 20120730
  Receipt Date: 20120718
  Transmission Date: 20120928
  Serious: Yes (Other)
  Sender: FDA-Public Use
  Company Number: JP-009507513-1207JPN009850

PATIENT

DRUGS (3)
  1. BETAMETHASONE [Suspect]
     Indication: MATERNAL THERAPY TO ENHANCE FOETAL LUNG MATURITY
     Dosage: UNK
  2. MAGNESIUM SULFATE [Concomitant]
     Indication: THREATENED LABOUR
  3. RITODRINE HYDROCHLORIDE [Suspect]
     Indication: THREATENED LABOUR

REACTIONS (2)
  - MATERNAL EXPOSURE DURING PREGNANCY [None]
  - PULMONARY OEDEMA [None]
